FAERS Safety Report 7941071-5 (Version None)
Quarter: 2011Q4

REPORT INFORMATION
  Report Type: 
  Country: None (occurrence: None)
  Receive Date: 20111114
  Receipt Date: 20110817
  Transmission Date: 20120403
  Serious: Yes (Other)
  Sender: FDA-Public Use
  Company Number: 2011S1000534

PATIENT

DRUGS (6)
  1. VANCOMYCIN [Concomitant]
  2. LINEZOLID [Concomitant]
  3. CUBICIN [Suspect]
     Indication: SEPSIS
  4. CUBICIN [Suspect]
     Indication: CELLULITIS
  5. CUBICIN [Suspect]
     Indication: STAPHYLOCOCCAL BACTERAEMIA
  6. ALL OTHER THERAPEUTIC PRODUCTS [Concomitant]

REACTIONS (4)
  - DRUG INEFFECTIVE [None]
  - PSOAS ABSCESS [None]
  - OSTEOMYELITIS [None]
  - EXTRADURAL ABSCESS [None]
